FAERS Safety Report 4285788-5 (Version None)
Quarter: 2004Q1

REPORT INFORMATION
  Report Type: 
  Country: None (occurrence: None)
  Receive Date: 20040203
  Receipt Date: 20040126
  Transmission Date: 20041129
  Serious: Yes (Hospitalization)
  Sender: FDA-Public Use
  Company Number: US-SHR-03-018855

PATIENT
  Age: 47 Year
  Sex: Female

DRUGS (12)
  1. BETASERON [Suspect]
     Indication: MULTIPLE SCLEROSIS
     Dosage: 9.6 MIU, EVERY 2D, SUBCUTANEOUS
     Route: 058
     Dates: start: 20020327
  2. PRILOSEC [Concomitant]
  3. DETROL [Concomitant]
  4. LAMICTAL [Concomitant]
  5. KLONOPIN [Concomitant]
  6. ESTRATEST [Concomitant]
  7. PERCOCET [Concomitant]
  8. VALIUM/NET/(DIAZEPAM) [Concomitant]
  9. DESYREL [Concomitant]
  10. XANAX /USA/(ALPRAZOLAM) [Concomitant]
  11. FLONASE [Concomitant]
  12. ALBUTEROL [Concomitant]

REACTIONS (4)
  - BALANCE DISORDER [None]
  - COORDINATION ABNORMAL [None]
  - FALL [None]
  - UPPER LIMB FRACTURE [None]
